FAERS Safety Report 6384652-5 (Version None)
Quarter: 2009Q4

REPORT INFORMATION
  Report Type: 
  Country: None (occurrence: None)
  Receive Date: 20091001
  Receipt Date: 20090922
  Transmission Date: 20100525
  Serious: Yes (Hospitalization, Other)
  Sender: FDA-Public Use
  Company Number: PHHY2009BR38908

PATIENT
  Age: 66 Year
  Sex: Male
  Weight: 87 kg

DRUGS (21)
  1. FORASEQ [Suspect]
     Indication: CHRONIC OBSTRUCTIVE PULMONARY DISEASE
     Dosage: TWICE A DAY (IN THE MORNING AND AT NIGHT)
  2. COMBIVENT [Concomitant]
     Indication: DYSPNOEA
     Dosage: UNK
  3. COMBIVENT [Concomitant]
     Indication: ASTHMA
  4. CLOPIDOGREL BISULFATE [Concomitant]
     Indication: CARDIAC DISORDER
     Dosage: 1 TABLET DAILY
     Dates: start: 20071228
  5. ACETYLSALICYLIC ACID [Concomitant]
     Indication: CARDIAC DISORDER
     Dosage: UNK
     Dates: start: 20071228
  6. LOSARTAN POTASSIUM [Concomitant]
     Indication: CARDIAC DISORDER
     Dosage: 1 TABLET DAILY
     Dates: start: 20071228
  7. LIPITOR [Concomitant]
     Dosage: 20 MG, QD
     Dates: start: 20071228
  8. SUSTRATE [Concomitant]
     Indication: CARDIAC DISORDER
     Dosage: 1 SUBLINGUAL TABLET
     Dates: start: 20071228, end: 20071228
  9. SUSTRATE [Concomitant]
     Dosage: 1 SUBLINGUAL TABLET
     Dates: start: 20090831, end: 20090831
  10. VITERGAN MASTER [Concomitant]
     Dosage: 1 TABLET DAILY
  11. PANTOPAZ [Concomitant]
     Dosage: 20 MG, QD
  12. ACETILCISTEIN [Concomitant]
     Dosage: 200 UNK, UNK
  13. DIGECAP [Concomitant]
     Dosage: 2 TABLETS TWICE A DAY (IN THE MORNING AND IN THE AFTERNOON)
  14. LACTOBACILLUS ACIDOPHILUS [Concomitant]
     Dosage: 1 CAPSULE AFTER THE LUNCH AND DINNER
  15. LACTOBACILLUS BIFIDUS [Concomitant]
     Dosage: 1 CAPSULE AFTER THE LUNCH AND DINNER
  16. RHAMNOSUS [Concomitant]
     Dosage: 1 CAPSULE AFTER THE LUNCH AND DINNER
  17. PULMICORT [Concomitant]
     Dosage: 1 TABLET DAILY
  18. ANCORON [Concomitant]
     Dosage: 1 TABLET TWICE A DAY (IN THE MORNING AND AT NIGHT) FOR 7 DAYS
     Dates: start: 20090831
  19. SOMALIUM [Concomitant]
     Indication: CARDIAC DISORDER
     Dosage: 1 TABLET BEFORE BEDTIME
  20. SOMALIUM [Concomitant]
     Indication: CHRONIC OBSTRUCTIVE PULMONARY DISEASE
  21. SOMALIUM [Concomitant]
     Indication: NEOPLASM MALIGNANT

REACTIONS (7)
  - ANGINA PECTORIS [None]
  - ARRHYTHMIA [None]
  - PAIN IN JAW [None]
  - PROSTATE CANCER [None]
  - STENT PLACEMENT [None]
  - TACHYCARDIA [None]
  - VENOUS OCCLUSION [None]
